FAERS Safety Report 25753275 (Version 2)
Quarter: 2025Q3

REPORT INFORMATION
  Report Type: Spontaneous
  Country: JP (occurrence: JP)
  Receive Date: 20250903
  Receipt Date: 20250926
  Transmission Date: 20251021
  Serious: Yes (Other)
  Sender: NOVARTIS
  Company Number: JP-002147023-NVSJ2022JP096270

PATIENT
  Age: 72 Year
  Sex: Male

DRUGS (18)
  1. TASIGNA [Suspect]
     Active Substance: NILOTINIB
     Indication: Chronic myeloid leukaemia
     Route: 048
     Dates: start: 2011, end: 2021
  2. TASIGNA [Suspect]
     Active Substance: NILOTINIB
     Route: 048
     Dates: start: 202108
  3. TASIGNA [Suspect]
     Active Substance: NILOTINIB
     Route: 048
  4. TASIGNA [Suspect]
     Active Substance: NILOTINIB
     Route: 048
  5. TASIGNA [Suspect]
     Active Substance: NILOTINIB
     Route: 048
  6. TASIGNA [Suspect]
     Active Substance: NILOTINIB
     Route: 048
  7. TASIGNA [Suspect]
     Active Substance: NILOTINIB
     Route: 048
  8. TASIGNA [Suspect]
     Active Substance: NILOTINIB
     Route: 048
  9. BOSUTINIB [Concomitant]
     Active Substance: BOSUTINIB
     Indication: Chronic myeloid leukaemia
     Route: 048
     Dates: start: 20210317
  10. BOSUTINIB [Concomitant]
     Active Substance: BOSUTINIB
     Route: 048
     Dates: start: 20210326, end: 20210405
  11. BOSUTINIB [Concomitant]
     Active Substance: BOSUTINIB
     Route: 048
     Dates: start: 20210412, end: 20210419
  12. METHYLPREDNISOLONE [Concomitant]
     Active Substance: METHYLPREDNISOLONE
     Indication: Interstitial lung disease
     Route: 048
     Dates: start: 20210621
  13. METHYLPREDNISOLONE [Concomitant]
     Active Substance: METHYLPREDNISOLONE
     Route: 048
     Dates: start: 20210626
  14. PREDNISOLONE [Concomitant]
     Active Substance: PREDNISOLONE
     Indication: Product used for unknown indication
     Route: 065
  15. PREDNISOLONE [Concomitant]
     Active Substance: PREDNISOLONE
     Route: 065
  16. PREDNISOLONE [Concomitant]
     Active Substance: PREDNISOLONE
     Route: 065
  17. PREDNISOLONE [Concomitant]
     Active Substance: PREDNISOLONE
     Route: 065
  18. PREDNISOLONE [Concomitant]
     Active Substance: PREDNISOLONE
     Route: 065

REACTIONS (15)
  - Dementia [Unknown]
  - Pyelonephritis [Unknown]
  - Pyrexia [Unknown]
  - Liver disorder [Recovered/Resolved]
  - Rash [Recovered/Resolved]
  - Pruritus [Recovered/Resolved]
  - Constipation [Recovered/Resolved]
  - Haemorrhoids [Recovered/Resolved]
  - Arteriosclerosis [Recovered/Resolved]
  - Drug intolerance [Recovered/Resolved]
  - Hypercholesterolaemia [Unknown]
  - Low density lipoprotein increased [Unknown]
  - Glucose tolerance impaired [Unknown]
  - Glycosylated haemoglobin increased [Recovered/Resolved]
  - Hyperglycaemia [Unknown]

NARRATIVE: CASE EVENT DATE: 20210402
